FAERS Safety Report 9667208 (Version 1)
Quarter: 2013Q4

REPORT INFORMATION
  Report Type: Report from Study
  Country: CA (occurrence: CA)
  Receive Date: 20131104
  Receipt Date: 20131104
  Transmission Date: 20140711
  Serious: Yes (Other)
  Sender: FDA-Public Use
  Company Number: CA-ABBVIE-13P-028-1163262-00

PATIENT
  Age: 37 Year
  Sex: Female
  Weight: 157.54 kg

DRUGS (3)
  1. HUMIRA [Suspect]
     Indication: PSORIASIS
     Route: 058
     Dates: end: 201308
  2. HUMIRA [Suspect]
     Dates: start: 20131025
  3. PREVACID [Concomitant]
     Indication: GASTROOESOPHAGEAL REFLUX DISEASE
     Route: 048

REACTIONS (2)
  - Weight increased [Recovering/Resolving]
  - Weight decreased [Not Recovered/Not Resolved]
